FAERS Safety Report 7517966-3 (Version None)
Quarter: 2011Q2

REPORT INFORMATION
  Report Type: 
  Country: None (occurrence: None)
  Receive Date: 20110523
  Receipt Date: 20110513
  Transmission Date: 20111010
  Serious: Yes (Death, Life-Threatening, Hospitalization, Disabling, Other)
  Sender: FDA-Public Use
  Company Number: US-2011-10068

PATIENT
  Age: 72 Year
  Sex: Male

DRUGS (8)
  1. BUSULFAN [Suspect]
     Indication: LYMPHOMA
     Dosage: 60 MG MILLIGRAM(S), DAILY DOSE, INTRAVENOUS, 187 MG MILLIGRAM(S), DAILY DOSE, INTRAVENOUS
     Route: 048
     Dates: start: 20101109, end: 20101112
  2. BUSULFAN [Suspect]
     Indication: LYMPHOMA
     Dosage: 60 MG MILLIGRAM(S), DAILY DOSE, INTRAVENOUS, 187 MG MILLIGRAM(S), DAILY DOSE, INTRAVENOUS
     Route: 048
     Dates: start: 20101105, end: 20101105
  3. LORAZEPAM [Concomitant]
  4. COMPAZINE [Concomitant]
  5. ETOPOSIDE [Concomitant]
  6. POTASSIUM (POTASSIUM CHLORIDE) [Concomitant]
  7. CYCLOPHOSPHAMIDE [Concomitant]
  8. OXYCODONE HCL [Concomitant]

REACTIONS (20)
  - STAPHYLOCOCCAL SEPSIS [None]
  - HYPOVOLAEMIC SHOCK [None]
  - STEM CELL TRANSPLANT [None]
  - ERYTHEMA MULTIFORME [None]
  - RENAL FAILURE ACUTE [None]
  - LYMPHOMA [None]
  - ANAEMIA [None]
  - BACTERIAL SEPSIS [None]
  - NEUTROPENIA [None]
  - SEPTIC SHOCK [None]
  - DERMATITIS EXFOLIATIVE [None]
  - LOWER GASTROINTESTINAL HAEMORRHAGE [None]
  - DELIRIUM [None]
  - PNEUMONIA [None]
  - ACUTE RESPIRATORY DISTRESS SYNDROME [None]
  - RESPIRATORY FAILURE [None]
  - THROMBOCYTOPENIA [None]
  - BLOOD CULTURE POSITIVE [None]
  - ASPIRATION [None]
  - GENERAL PHYSICAL HEALTH DETERIORATION [None]
